FAERS Safety Report 9983658 (Version 2)
Quarter: 2014Q2

REPORT INFORMATION
  Report Type: Report from Study
  Country: JP (occurrence: JP)
  Receive Date: 20140307
  Receipt Date: 20140410
  Transmission Date: 20141212
  Serious: Yes (Hospitalization)
  Sender: FDA-Public Use
  Company Number: JP-AMGEN-JPNCT2014015823

PATIENT
  Age: 78 Year
  Sex: Male
  Weight: 59 kg

DRUGS (8)
  1. DARBEPOETIN ALFA [Suspect]
     Indication: NEPHROGENIC ANAEMIA
     Dosage: 60 MUG, Q4WK
     Route: 058
     Dates: start: 20110124
  2. ATELEC [Concomitant]
     Indication: NEPHROSCLEROSIS
     Dosage: UNK
     Route: 048
  3. FERROMIA [Concomitant]
     Indication: NEPHROSCLEROSIS
     Dosage: UNK
     Route: 048
  4. CINAL [Concomitant]
     Indication: NEPHROSCLEROSIS
     Dosage: UNK
     Route: 048
  5. DIART [Concomitant]
     Indication: NEPHROSCLEROSIS
     Dosage: UNK
     Route: 048
  6. FLUITRAN [Concomitant]
     Indication: NEPHROSCLEROSIS
     Dosage: UNK
     Route: 048
  7. LASIX                              /00032601/ [Concomitant]
     Dosage: UNK
     Route: 048
  8. MICARDIS [Concomitant]
     Indication: NEPHROSCLEROSIS
     Dosage: UNK
     Route: 048

REACTIONS (1)
  - Cardiac failure [Recovering/Resolving]
